FAERS Safety Report 21132733 (Version 1)
Quarter: 2022Q3

REPORT INFORMATION
  Report Type: Report from Study
  Country: MX (occurrence: MX)
  Receive Date: 20220726
  Receipt Date: 20220726
  Transmission Date: 20221027
  Serious: Yes (Other)
  Sender: FDA-Public Use
  Company Number: MX-NOVARTISPH-NVSC2022MX168411

PATIENT
  Sex: Male
  Weight: 126 kg

DRUGS (1)
  1. EXFORGE HCT [Suspect]
     Active Substance: AMLODIPINE BESYLATE\HYDROCHLOROTHIAZIDE\VALSARTAN
     Indication: Hypertension
     Dosage: 1 DOSAGE FORM OF 5/12.5/160 MG, QD
     Route: 048
     Dates: start: 20110308

REACTIONS (2)
  - Deafness bilateral [Not Recovered/Not Resolved]
  - Inner ear infarction [Not Recovered/Not Resolved]
